FAERS Safety Report 17276701 (Version 7)
Quarter: 2020Q2

REPORT INFORMATION
  Report Type: Spontaneous
  Country: US (occurrence: US)
  Receive Date: 20200116
  Receipt Date: 20200615
  Transmission Date: 20200713
  Serious: No
  Sender: FDA-Public Use
  Company Number: US-VERTEX PHARMACEUTICALS-2020-000205

PATIENT
  Age: 39 Year
  Sex: Male
  Weight: 104 kg

DRUGS (9)
  1. TRANEXAMIC ACID. [Concomitant]
     Active Substance: TRANEXAMIC ACID
  2. CREON [Concomitant]
     Active Substance: PANCRELIPASE AMYLASE\PANCRELIPASE LIPASE\PANCRELIPASE PROTEASE
  3. VANCOMYCIN [Concomitant]
     Active Substance: VANCOMYCIN
  4. XYZAL ALLERGY 24HR [Concomitant]
     Active Substance: LEVOCETIRIZINE DIHYDROCHLORIDE
  5. AMICAR [Concomitant]
     Active Substance: AMINOCAPROIC ACID
  6. KEPPRA [Concomitant]
     Active Substance: LEVETIRACETAM
  7. DOXYCYCLINE. [Concomitant]
     Active Substance: DOXYCYCLINE
  8. TRIKAFTA [Suspect]
     Active Substance: ELEXACAFTOR\IVACAFTOR\TEZACAFTOR
     Indication: CYSTIC FIBROSIS
     Dosage: 100 MG ELEXACAFTOR/ 50 MG TEZACAFTOR/ 75 MG IVACAFTOR (2 TABS IN AM); 150MG IVACAFTOR (1 TAB IN PM)
     Route: 048
     Dates: start: 20191205
  9. LANTUS [Concomitant]
     Active Substance: INSULIN GLARGINE

REACTIONS (24)
  - Weight increased [Not Recovered/Not Resolved]
  - Headache [Unknown]
  - Vomiting [Unknown]
  - Peripheral swelling [Not Recovered/Not Resolved]
  - Productive cough [Not Recovered/Not Resolved]
  - Fatigue [Unknown]
  - Pain [Unknown]
  - Product dose omission [Recovered/Resolved]
  - Haemoptysis [Unknown]
  - Chest discomfort [Unknown]
  - Blood glucose increased [Unknown]
  - Arthralgia [Unknown]
  - Joint swelling [Recovering/Resolving]
  - Insomnia [Not Recovered/Not Resolved]
  - Respiratory tract congestion [Unknown]
  - Nausea [Unknown]
  - Rales [Unknown]
  - Abdominal distension [Unknown]
  - Pain in extremity [Unknown]
  - Pyrexia [Unknown]
  - Intestinal obstruction [Unknown]
  - Wheezing [Unknown]
  - Back pain [Recovered/Resolved]
  - Influenza [Recovered/Resolved]

NARRATIVE: CASE EVENT DATE: 201912
